FAERS Safety Report 19650247 (Version 1)
Quarter: 2021Q3

REPORT INFORMATION
  Report Type: Spontaneous
  Country: US (occurrence: US)
  Receive Date: 20210802
  Receipt Date: 20210802
  Transmission Date: 20211014
  Serious: No
  Sender: FDA-Public Use
  Company Number: None

PATIENT
  Age: 28 Year
  Sex: Male
  Weight: 82.8 kg

DRUGS (2)
  1. STRATTERA [Suspect]
     Active Substance: ATOMOXETINE HYDROCHLORIDE
  2. ATOMOXETINE HCL [Suspect]
     Active Substance: ATOMOXETINE HYDROCHLORIDE
     Indication: ATTENTION DEFICIT HYPERACTIVITY DISORDER
     Dosage: ?          QUANTITY:1 TABLET(S);?
     Route: 048
     Dates: start: 20210730, end: 20210802

REACTIONS (15)
  - Pharyngeal swelling [None]
  - Loss of consciousness [None]
  - Panic attack [None]
  - Anger [None]
  - Chest pain [None]
  - Erectile dysfunction [None]
  - Palpitations [None]
  - Heart rate irregular [None]
  - Feeling abnormal [None]
  - Unresponsive to stimuli [None]
  - Fatigue [None]
  - Dyspepsia [None]
  - Somnolence [None]
  - Tachyphrenia [None]
  - Aggression [None]

NARRATIVE: CASE EVENT DATE: 20210730
